FAERS Safety Report 7776573-8 (Version None)
Quarter: 2011Q3

REPORT INFORMATION
  Report Type: 
  Country: None (occurrence: None)
  Receive Date: 20110926
  Receipt Date: 20110915
  Transmission Date: 20111222
  Serious: Yes (Other)
  Sender: FDA-Public Use
  Company Number: FR-JNJFOC-20110302058

PATIENT
  Sex: Male
  Weight: 84 kg

DRUGS (4)
  1. RISPERDAL [Suspect]
     Indication: ABNORMAL BEHAVIOUR
     Route: 048
     Dates: start: 20081201, end: 20110201
  2. RISPERDAL [Suspect]
     Route: 048
     Dates: start: 20110201, end: 20110201
  3. RISPERDAL [Suspect]
     Indication: AGITATION
     Route: 048
     Dates: start: 20081201, end: 20110201
  4. RISPERDAL [Suspect]
     Route: 048
     Dates: start: 20110201, end: 20110201

REACTIONS (6)
  - BLOOD ALKALINE PHOSPHATASE INCREASED [None]
  - GAZE PALSY [None]
  - OVERDOSE [None]
  - EYE PAIN [None]
  - OCULOGYRIC CRISIS [None]
  - HEADACHE [None]
